FAERS Safety Report 8199237-8 (Version None)
Quarter: 2012Q1

REPORT INFORMATION
  Report Type: 
  Country: None (occurrence: None)
  Receive Date: 20120309
  Receipt Date: 20120228
  Transmission Date: 20120608
  Serious: Yes (Hospitalization)
  Sender: FDA-Public Use
  Company Number: US-ELI_LILLY_AND_COMPANY-US201203000245

PATIENT
  Sex: Female

DRUGS (2)
  1. HUMALOG [Suspect]
     Dosage: 20 U, PRN
  2. LANTUS [Concomitant]
     Dosage: UNK

REACTIONS (2)
  - KNEE ARTHROPLASTY [None]
  - ARTHRALGIA [None]
